FAERS Safety Report 20462782 (Version 1)
Quarter: 2022Q1

REPORT INFORMATION
  Report Type: Spontaneous
  Country: US (occurrence: None)
  Receive Date: 20220211
  Receipt Date: 20220211
  Transmission Date: 20220423
  Serious: Yes (Disabling)
  Sender: FDA-Public Use
  Company Number: None

PATIENT
  Age: 25 Year
  Sex: Female
  Weight: 51.75 kg

DRUGS (2)
  1. IMPLANON [Suspect]
     Active Substance: ETONOGESTREL
     Indication: Contraception
     Dosage: OTHER QUANTITY : 1 INJECTION(S);?
     Route: 058
     Dates: start: 20180301, end: 20181218
  2. NEXPLANON [Suspect]
     Active Substance: ETONOGESTREL
     Indication: Product used for unknown indication

REACTIONS (8)
  - Implant site reaction [None]
  - Hypersensitivity [None]
  - Hormone level abnormal [None]
  - Complication of device removal [None]
  - Acne [None]
  - Impulsive behaviour [None]
  - Implant site pruritus [None]
  - Symptom recurrence [None]

NARRATIVE: CASE EVENT DATE: 20220125
